FAERS Safety Report 6591037-5 (Version None)
Quarter: 2010Q1

REPORT INFORMATION
  Report Type: 
  Country: None (occurrence: None)
  Receive Date: 20100212
  Receipt Date: 20100201
  Transmission Date: 20100710
  Serious: Yes (Other)
  Sender: FDA-Public Use
  Company Number: 231131J10USA

PATIENT
  Age: 32 Year
  Sex: Female
  Weight: 145 kg

DRUGS (2)
  1. REBIF [Suspect]
     Indication: MULTIPLE SCLEROSIS
     Dosage: 44 MCG, 3 IN 1 WEEKS, SUBCUTANEOUS
     Route: 058
     Dates: start: 20091029
  2. CARDIZEM (DILTIAZEM /00489701/) [Concomitant]

REACTIONS (5)
  - ARTHRALGIA [None]
  - BLOOD PRESSURE INADEQUATELY CONTROLLED [None]
  - CEREBROVASCULAR ACCIDENT [None]
  - JOINT STIFFNESS [None]
  - PARAESTHESIA [None]
